FAERS Safety Report 9431009 (Version 3)
Quarter: 2013Q3

REPORT INFORMATION
  Report Type: Spontaneous
  Country: US (occurrence: US)
  Receive Date: 20130730
  Receipt Date: 20130830
  Transmission Date: 20140515
  Serious: No
  Sender: FDA-Public Use
  Company Number: US-PFIZER INC-2013218456

PATIENT
  Age: 83 Year
  Sex: Male

DRUGS (6)
  1. TOVIAZ [Suspect]
     Indication: HYPERTONIC BLADDER
     Dosage: 8 MG, UNK
  2. BYSTOLIC [Concomitant]
     Dosage: UNK
     Route: 048
  3. NEXIUM [Concomitant]
     Dosage: UNK
     Route: 048
  4. PLAVIX [Concomitant]
     Dosage: UNK
     Route: 048
  5. VESICARE [Concomitant]
     Dosage: 5 MG, UNK
     Route: 048
  6. VESICARE [Concomitant]
     Dosage: 10 MG, UNK

REACTIONS (2)
  - Condition aggravated [Unknown]
  - Drug effect incomplete [Unknown]
